FAERS Safety Report 7644874-X (Version None)
Quarter: 2011Q3

REPORT INFORMATION
  Report Type: 
  Country: None (occurrence: None)
  Receive Date: 20110729
  Receipt Date: 20110725
  Transmission Date: 20111222
  Serious: Yes (Other)
  Sender: FDA-Public Use
  Company Number: US-SANOFI-AVENTIS-2011SA047642

PATIENT
  Age: 80 Year
  Sex: Female

DRUGS (4)
  1. COZAAR [Concomitant]
  2. METOPROLOL TARTRATE [Concomitant]
  3. MULTAQ [Suspect]
     Indication: ATRIAL FIBRILLATION
     Route: 048
     Dates: start: 20110101, end: 20110715
  4. ATORVASTATIN [Concomitant]

REACTIONS (3)
  - ASTHENIA [None]
  - DIARRHOEA [None]
  - ATRIAL FIBRILLATION [None]
